FAERS Safety Report 6678234-5 (Version None)
Quarter: 2010Q2

REPORT INFORMATION
  Report Type: 
  Country: None (occurrence: None)
  Receive Date: 20100408
  Receipt Date: 20100408
  Transmission Date: 20101027
  Serious: Yes (Other)
  Sender: FDA-Public Use
  Company Number: None

PATIENT
  Age: 37 Year
  Sex: Female
  Weight: 64.4108 kg

DRUGS (1)
  1. ONDANSETRON [Suspect]
     Indication: NAUSEA
     Dosage: 4 MG EVERY 8 HRS PO
     Route: 048
     Dates: start: 20100320, end: 20100401

REACTIONS (5)
  - ABDOMINAL PAIN UPPER [None]
  - CONSTIPATION [None]
  - DRUG EXPOSURE DURING PREGNANCY [None]
  - MIGRAINE [None]
  - NIGHTMARE [None]
